FAERS Safety Report 4675365-6 (Version None)
Quarter: 2005Q2

REPORT INFORMATION
  Report Type: 
  Country: None (occurrence: None)
  Receive Date: 20050527
  Receipt Date: 20050204
  Transmission Date: 20051028
  Serious: Yes (Other)
  Sender: FDA-Public Use
  Company Number: US-BRISTOL-MYERS SQUIBB COMPANY-12854709

PATIENT
  Age: 49 Year
  Sex: Male
  Weight: 57 kg

DRUGS (4)
  1. ABILIFY [Suspect]
     Indication: NERVOUSNESS
  2. ABILIFY [Suspect]
     Indication: ANXIETY
  3. VASOTEC [Concomitant]
  4. ZOCOR [Concomitant]

REACTIONS (3)
  - LYMPHADENOPATHY [None]
  - TREMOR [None]
  - WEIGHT DECREASED [None]
